FAERS Safety Report 10217389 (Version 1)
Quarter: 2014Q2

REPORT INFORMATION
  Report Type: Spontaneous
  Country: US (occurrence: US)
  Receive Date: 20140604
  Receipt Date: 20140604
  Transmission Date: 20141212
  Serious: Yes (Other)
  Sender: FDA-Public Use
  Company Number: US-SA-2014SA071913

PATIENT
  Age: 61 Year
  Sex: Female

DRUGS (2)
  1. KYNAMRO [Suspect]
     Indication: HYPERCHOLESTEROLAEMIA
     Route: 058
     Dates: start: 20131231
  2. IBUPROFEN [Concomitant]

REACTIONS (2)
  - Injection site nodule [Unknown]
  - Gout [Unknown]
